FAERS Safety Report 12549626 (Version 1)
Quarter: 2016Q3

REPORT INFORMATION
  Report Type: Spontaneous
  Country: US (occurrence: US)
  Receive Date: 20160712
  Receipt Date: 20160712
  Transmission Date: 20161109
  Serious: No
  Sender: FDA-Public Use
  Company Number: US-CELGENEUS-USA-2016066743

PATIENT
  Sex: Female

DRUGS (1)
  1. OTEZLA [Suspect]
     Active Substance: APREMILAST
     Indication: PRODUCT USED FOR UNKNOWN INDICATION
     Dosage: 60 MILLIGRAM
     Route: 048

REACTIONS (9)
  - Hypotension [Unknown]
  - Abdominal pain upper [Unknown]
  - Tinnitus [Unknown]
  - Headache [Unknown]
  - Drug ineffective [Unknown]
  - Pneumonia [Unknown]
  - Nasal congestion [Unknown]
  - Nausea [Unknown]
  - Dizziness [Unknown]
